FAERS Safety Report 8462343-4 (Version None)
Quarter: 2012Q2

REPORT INFORMATION
  Report Type: 
  Country: None (occurrence: None)
  Receive Date: 20120625
  Receipt Date: 20120611
  Transmission Date: 20120825
  Serious: Yes (Other)
  Sender: FDA-Public Use
  Company Number: FR-ASTRAZENECA-2012SE39297

PATIENT
  Age: 891 Month
  Sex: Male

DRUGS (7)
  1. PANTOPRAZOLE SODIUM [Concomitant]
     Dates: start: 20110201, end: 20110801
  2. PERINDOPRIL ERBUMINE [Suspect]
     Route: 048
     Dates: start: 20110201, end: 20110801
  3. ASPIRIN [Concomitant]
     Indication: MYOCARDIAL INFARCTION
     Dates: start: 20110201, end: 20110801
  4. ATORVASTATIN [Concomitant]
     Dates: start: 20110201, end: 20110801
  5. TENORMIN [Suspect]
     Route: 048
     Dates: start: 20110201, end: 20120420
  6. QVAR 40 [Concomitant]
  7. CANDESARTAN CILEXETIL [Suspect]
     Route: 048
     Dates: start: 20110801, end: 20120420

REACTIONS (1)
  - TOXIC SKIN ERUPTION [None]
